FAERS Safety Report 25356566 (Version 1)
Quarter: 2025Q2

REPORT INFORMATION
  Report Type: Spontaneous
  Country: US (occurrence: US)
  Receive Date: 20250526
  Receipt Date: 20250526
  Transmission Date: 20250716
  Serious: No
  Sender: STALLERGENES
  Company Number: US-STALCOR-2025-AER-00959

PATIENT
  Age: 10 Year
  Sex: Male
  Weight: 31.3 kg

DRUGS (2)
  1. PALFORZIA [Suspect]
     Active Substance: PEANUT
     Indication: Food allergy
     Dosage: REACTIVE DOSE, IDE (0/5-6MG) AT PRESCRIBER^S OFFICE
     Route: 048
     Dates: start: 20250303
  2. PALFORZIA [Suspect]
     Active Substance: PEANUT
     Dosage: ON 04-MAR-2025, AT HOME DOSE OF 3MG PALFORZIA.
     Dates: start: 20250304

REACTIONS (2)
  - Abdominal pain [Unknown]
  - Pruritus [Unknown]

NARRATIVE: CASE EVENT DATE: 20250303
